FAERS Safety Report 5401824-4 (Version None)
Quarter: 2007Q3

REPORT INFORMATION
  Report Type: 
  Country: None (occurrence: None)
  Receive Date: 20070726
  Receipt Date: 20070712
  Transmission Date: 20080115
  Serious: Yes (Life-Threatening, Hospitalization)
  Sender: FDA-Public Use
  Company Number: POMP-11075

PATIENT
  Age: 51 Week
  Sex: Male

DRUGS (1)
  1. MYOZYME [Suspect]
     Indication: GLYCOGEN STORAGE DISEASE TYPE II
     Dosage: 20 MG Q2WKS IV
     Route: 042
     Dates: start: 20061006

REACTIONS (6)
  - BRONCHIOLITIS [None]
  - CARDIOPULMONARY FAILURE [None]
  - ENTEROBACTER INFECTION [None]
  - LUNG INFECTION [None]
  - PSEUDOMONAS INFECTION [None]
  - SPUTUM CULTURE POSITIVE [None]
